FAERS Safety Report 16146510 (Version 2)
Quarter: 2019Q2

REPORT INFORMATION
  Report Type: Report from Study
  Country: US (occurrence: US)
  Receive Date: 20190402
  Receipt Date: 20190411
  Transmission Date: 20190711
  Serious: Yes (Death, Other)
  Sender: FDA-Public Use
  Company Number: US-GILEAD-2019-0399594

PATIENT
  Age: 59 Year
  Sex: Female
  Weight: 119.3 kg

DRUGS (9)
  1. UPTRAVI [Concomitant]
     Active Substance: SELEXIPAG
  2. GABAPENTIN. [Concomitant]
     Active Substance: GABAPENTIN
  3. MIRTAZAPINE. [Concomitant]
     Active Substance: MIRTAZAPINE
  4. MULTIVITAMINS;MINERALS [Concomitant]
  5. POTASSIUM CHLORIDE. [Concomitant]
     Active Substance: POTASSIUM CHLORIDE
  6. MIDODRINE [Concomitant]
     Active Substance: MIDODRINE
     Indication: HYPOTENSION
  7. AMBRISENTAN [Suspect]
     Active Substance: AMBRISENTAN
     Indication: PULMONARY ARTERIAL HYPERTENSION
     Dosage: 10 MG, QD
     Route: 048
     Dates: start: 20180727, end: 20190312
  8. SELEXIPAG [Concomitant]
     Active Substance: SELEXIPAG
     Indication: PULMONARY HYPERTENSION
     Dosage: 1200 MG
     Route: 048
  9. HYDROCODONE BITARTRATE AND ACETAMINOPHEN [Concomitant]
     Active Substance: ACETAMINOPHEN\HYDROCODONE BITARTRATE

REACTIONS (3)
  - Infection [Not Recovered/Not Resolved]
  - Cutaneous lymphoma [Fatal]
  - Wound [Not Recovered/Not Resolved]
